FAERS Safety Report 8011966-5 (Version None)
Quarter: 2011Q4

REPORT INFORMATION
  Report Type: 
  Country: None (occurrence: None)
  Receive Date: 20111228
  Receipt Date: 20111222
  Transmission Date: 20120403
  Serious: Yes (Death, Hospitalization)
  Sender: FDA-Public Use
  Company Number: US-GLAXOSMITHKLINE-A0941868A

PATIENT
  Age: 72 Year
  Sex: Female

DRUGS (14)
  1. ADVAIR DISKUS 100/50 [Suspect]
     Indication: PULMONARY HYPERTENSION
     Dosage: 1PUFF TWICE PER DAY
     Route: 055
     Dates: start: 20081101, end: 20110801
  2. FUROSEMIDE [Concomitant]
  3. STOOL SOFTENER [Concomitant]
  4. UNSPECIFIED MEDICATION [Concomitant]
  5. REVATIO [Concomitant]
  6. GABAPENTIN [Concomitant]
  7. CALCIUM ACETATE [Concomitant]
  8. VITAMIN D [Concomitant]
  9. PANTOPRAZOLE [Concomitant]
  10. PREDNISONE TAB [Concomitant]
  11. METOPROLOL SUCCINATE [Concomitant]
  12. SULFATRIM [Concomitant]
  13. ALBUTEROL [Concomitant]
  14. PERCOCET [Concomitant]

REACTIONS (3)
  - PULMONARY ARTERIAL HYPERTENSION [None]
  - FALL [None]
  - CONTUSION [None]
